FAERS Safety Report 22193128 (Version 1)
Quarter: 2023Q2

REPORT INFORMATION
  Report Type: Spontaneous
  Country: US (occurrence: None)
  Receive Date: 20230410
  Receipt Date: 20230410
  Transmission Date: 20230722
  Serious: No
  Sender: FDA-Public Use
  Company Number: None

PATIENT
  Age: 51 Year
  Sex: Female
  Weight: 82.6 kg

DRUGS (18)
  1. WELIREG [Suspect]
     Active Substance: BELZUTIFAN
     Indication: Renal cancer
     Dosage: FREQUENCY : DAILY;?
     Route: 048
  2. ASPIRIN [Concomitant]
     Active Substance: ASPIRIN
  3. ALBUTERON [Concomitant]
  4. BETAMETHASONE [Concomitant]
     Active Substance: BETAMETHASONE
  5. BUPROPION [Concomitant]
     Active Substance: BUPROPION
  6. CRESTOR [Concomitant]
     Active Substance: ROSUVASTATIN CALCIUM
  7. VITAMIN C [Concomitant]
     Active Substance: ASCORBIC ACID
  8. VITAMIN D NOS [Concomitant]
     Active Substance: VITAMIN D NOS
  9. LEVEMIR [Concomitant]
     Active Substance: INSULIN DETEMIR
  10. LISINOPRIL [Concomitant]
     Active Substance: LISINOPRIL
  11. METFORMIN [Concomitant]
     Active Substance: METFORMIN HYDROCHLORIDE
  12. METHOTREXATE [Concomitant]
     Active Substance: METHOTREXATE
  13. MOMETASONE [Concomitant]
     Active Substance: MOMETASONE
  14. MOUNJARO [Concomitant]
     Active Substance: TIRZEPATIDE
  15. HERBALS\TURMERIC [Concomitant]
     Active Substance: HERBALS\TURMERIC
  16. TIMOPTIC [Concomitant]
     Active Substance: TIMOLOL MALEATE
  17. ZAFIRULAST [Concomitant]
  18. ZINC [Concomitant]
     Active Substance: ZINC

REACTIONS (4)
  - Dyspnoea [None]
  - Visual impairment [None]
  - Oxygen saturation decreased [None]
  - Vision blurred [None]
